FAERS Safety Report 17977162 (Version 9)
Quarter: 2021Q2

REPORT INFORMATION
  Report Type: Other
  Country: US (occurrence: US)
  Receive Date: 20200703
  Receipt Date: 20210424
  Transmission Date: 20210717
  Serious: Yes (Hospitalization, Other)
  Sender: FDA-Public Use
  Company Number: US-ROCHE-2635750

PATIENT
  Age: 83 Year
  Sex: Male
  Weight: 72.64 kg

DRUGS (34)
  1. ESBRIET [Suspect]
     Active Substance: PIRFENIDONE
     Indication: IDIOPATHIC PULMONARY FIBROSIS
     Dosage: TAKE 1 TABLET BY MOUTH
     Route: 048
  2. ESBRIET [Suspect]
     Active Substance: PIRFENIDONE
     Indication: DIABETES INSIPIDUS
     Route: 048
  3. CLOPIDOGREL [Concomitant]
     Active Substance: CLOPIDOGREL BISULFATE
     Indication: PRODUCT USED FOR UNKNOWN INDICATION
  4. IRON [Concomitant]
     Active Substance: IRON
     Indication: PRODUCT USED FOR UNKNOWN INDICATION
     Route: 048
  5. NOVOLOG [Concomitant]
     Active Substance: INSULIN ASPART
     Indication: DIABETES MELLITUS
     Route: 058
     Dates: start: 2005
  6. ALBUTEROL. [Concomitant]
     Active Substance: ALBUTEROL
  7. ESBRIET [Suspect]
     Active Substance: PIRFENIDONE
     Route: 048
     Dates: start: 201710
  8. PREDNISONE. [Concomitant]
     Active Substance: PREDNISONE
     Route: 048
  9. SINGULAIR [Concomitant]
     Active Substance: MONTELUKAST SODIUM
     Route: 048
  10. VITAMIN D3 [Concomitant]
     Active Substance: CHOLECALCIFEROL
     Route: 048
  11. METOLAZONE. [Concomitant]
     Active Substance: METOLAZONE
  12. METOPROLOL. [Concomitant]
     Active Substance: METOPROLOL
  13. PANTOPRAZOLE [Concomitant]
     Active Substance: PANTOPRAZOLE
  14. ESBRIET [Suspect]
     Active Substance: PIRFENIDONE
     Indication: ARTHRITIS
     Dosage: WITH MEALS
     Route: 048
  15. FUROSEMIDE. [Concomitant]
     Active Substance: FUROSEMIDE
     Indication: PRODUCT USED FOR UNKNOWN INDICATION
  16. PLAVIX [Concomitant]
     Active Substance: CLOPIDOGREL BISULFATE
     Route: 048
  17. STIOLTO RESPIMAT [Concomitant]
     Active Substance: OLODATEROL HYDROCHLORIDE\TIOTROPIUM BROMIDE MONOHYDRATE
  18. CYANOCOBALAMIN. [Concomitant]
     Active Substance: CYANOCOBALAMIN
  19. ASPIRIN. [Concomitant]
     Active Substance: ASPIRIN
     Indication: PRODUCT USED FOR UNKNOWN INDICATION
  20. LEVEMIR [Concomitant]
     Active Substance: INSULIN DETEMIR
     Indication: DIABETES MELLITUS
     Route: 058
     Dates: start: 2005
  21. GLIPIZIDE. [Concomitant]
     Active Substance: GLIPIZIDE
  22. ESBRIET [Suspect]
     Active Substance: PIRFENIDONE
     Route: 048
  23. KETOCONAZOLE. [Concomitant]
     Active Substance: KETOCONAZOLE
  24. POTASSIUM [Concomitant]
     Active Substance: POTASSIUM
     Indication: PRODUCT USED FOR UNKNOWN INDICATION
  25. PRESERVISION [Concomitant]
     Active Substance: MINERALS\VITAMINS
     Indication: PRODUCT USED FOR UNKNOWN INDICATION
  26. CHOLECALCIFEROL [Concomitant]
     Active Substance: CHOLECALCIFEROL
  27. ESBRIET [Suspect]
     Active Substance: PIRFENIDONE
     Route: 048
  28. ALLOPURINOL. [Concomitant]
     Active Substance: ALLOPURINOL
  29. LASIX [Concomitant]
     Active Substance: FUROSEMIDE
     Route: 048
     Dates: start: 2011
  30. LEVEMIR [Concomitant]
     Active Substance: INSULIN DETEMIR
     Route: 058
     Dates: start: 2005
  31. GUAIFENESIN. [Concomitant]
     Active Substance: GUAIFENESIN
  32. HYDRALAZINE [Concomitant]
     Active Substance: HYDRALAZINE HYDROCHLORIDE
  33. ESBRIET [Suspect]
     Active Substance: PIRFENIDONE
     Indication: PULMONARY FIBROSIS
     Route: 048
     Dates: start: 2017
  34. ROSUVASTATIN. [Concomitant]
     Active Substance: ROSUVASTATIN
     Route: 048

REACTIONS (6)
  - Cardiac disorder [Unknown]
  - Wheelchair user [Unknown]
  - Gangrene [Recovered/Resolved]
  - Cardiac disorder [Recovered/Resolved]
  - Diabetes mellitus [Unknown]
  - Visual impairment [Unknown]

NARRATIVE: CASE EVENT DATE: 202008
